FAERS Safety Report 6426703-5 (Version None)
Quarter: 2009Q4

REPORT INFORMATION
  Report Type: 
  Country: None (occurrence: None)
  Receive Date: 20091104
  Receipt Date: 20091005
  Transmission Date: 20100525
  Serious: Yes (Hospitalization, Other)
  Sender: FDA-Public Use
  Company Number: CR-ELI_LILLY_AND_COMPANY-CR200909004401

PATIENT
  Age: 54 Year
  Sex: Female

DRUGS (6)
  1. OLANZAPINE [Suspect]
     Indication: DEPRESSION
     Dosage: 10 MG, DAILY (1/D)
     Route: 048
  2. OLANZAPINE [Suspect]
     Dosage: 70 MG, UNKNOWN
     Route: 065
  3. PAXIL [Concomitant]
     Indication: DEPRESSION
     Dosage: UNK, UNKNOWN
     Route: 065
  4. PAXIL [Concomitant]
     Dosage: 4 MG, UNKNOWN
     Route: 065
  5. RIVOTRIL [Concomitant]
     Indication: DEPRESSION
     Dosage: UNK, UNKNOWN
     Route: 065
  6. RIVOTRIL [Concomitant]
     Dosage: 100 MG, UNKNOWN
     Route: 065

REACTIONS (8)
  - DEPRESSION [None]
  - NEUROLEPTIC MALIGNANT SYNDROME [None]
  - OFF LABEL USE [None]
  - OVERDOSE [None]
  - PSYCHOTIC BEHAVIOUR [None]
  - SEDATION [None]
  - SUICIDAL IDEATION [None]
  - SUICIDE ATTEMPT [None]
